FAERS Safety Report 8292625 (Version 4)
Quarter: 2012Q4

REPORT INFORMATION
  Report Type: Spontaneous
  Country: US (occurrence: None)
  Receive Date: 20111122
  Receipt Date: 20120426
  Transmission Date: 20130627
  Serious: No
  Sender: FDA-Public Use
  Company Number: PHHY2011US33222

PATIENT
  Age: 39 Year
  Sex: Female
  Weight: 52.2 kg

DRUGS (2)
  1. GILENYA [Suspect]
     Indication: MULTIPLE SCLEROSIS
     Dosage: 0.5 MG, DAILY, ORAL, 0.5 MG, DAILY, ORAL
     Route: 048
     Dates: start: 20101021, end: 20110530
  2. GILENYA [Suspect]
     Indication: MULTIPLE SCLEROSIS
     Dosage: 0.5 MG, DAILY, ORAL, 0.5 MG, DAILY, ORAL
     Route: 048
     Dates: start: 20110613

REACTIONS (10)
  - Abnormal dreams [None]
  - Nausea [None]
  - Dysgeusia [None]
  - Decreased appetite [None]
  - Insomnia [None]
  - Parosmia [None]
  - Urine odour abnormal [None]
  - Vomiting [None]
  - Weight decreased [None]
  - Memory impairment [None]
